FAERS Safety Report 15934181 (Version 1)
Quarter: 2019Q1

REPORT INFORMATION
  Report Type: Spontaneous
  Country: US (occurrence: US)
  Receive Date: 20190207
  Receipt Date: 20190207
  Transmission Date: 20190417
  Serious: Yes (Hospitalization, Other)
  Sender: FDA-Public Use
  Company Number: US-PURDUE PHARMA-USA-2019-0145856

PATIENT
  Sex: Female

DRUGS (18)
  1. POTASSIUM CHLORIDE. [Concomitant]
     Active Substance: POTASSIUM CHLORIDE
     Dosage: (3X10 MEQ)30 MEQ, Q SAT AND SUN
     Route: 065
  2. CARISOPRODOL. [Concomitant]
     Active Substance: CARISOPRODOL
     Indication: MUSCLE SPASMS
     Dosage: 350 MG, QID
     Route: 065
  3. LYRICA [Suspect]
     Active Substance: PREGABALIN
     Indication: FIBROMYALGIA
     Dosage: 75 MG, TID
     Route: 065
  4. POTASSIUM CHLORIDE. [Concomitant]
     Active Substance: POTASSIUM CHLORIDE
     Indication: BLOOD POTASSIUM DECREASED
     Dosage: (2X10 MEQ) 20 MEQ, Q5 DAY
     Route: 065
     Dates: start: 2007
  5. DIAZEPAM. [Concomitant]
     Active Substance: DIAZEPAM
     Indication: MUSCLE SPASMS
  6. ASPIRIN. [Concomitant]
     Active Substance: ASPIRIN
     Indication: PRODUCT USED FOR UNKNOWN INDICATION
     Dosage: UNK
     Route: 065
  7. LEVOTHYROXINE. [Concomitant]
     Active Substance: LEVOTHYROXINE
     Indication: THYROID CANCER
     Dosage: 112 MCG, DAILY
     Route: 065
  8. OXYBUTYNIN. [Concomitant]
     Active Substance: OXYBUTYNIN CHLORIDE
     Indication: URINARY INCONTINENCE
     Dosage: 15 MG, DAILY
     Route: 065
  9. DIAZEPAM. [Concomitant]
     Active Substance: DIAZEPAM
     Indication: ANXIETY
     Dosage: UNK
     Route: 065
  10. DIAZEPAM. [Concomitant]
     Active Substance: DIAZEPAM
     Indication: SLEEP TERROR
  11. LYRICA [Suspect]
     Active Substance: PREGABALIN
     Indication: NERVE INJURY
  12. MORPHINE SULFATE EXTENDED-RELEASE TABLETS (RHODES 74-769, 74-862) [Suspect]
     Active Substance: MORPHINE SULFATE
     Indication: PAIN
     Dosage: (2X60 MG) 120 MG, BID
     Route: 048
  13. CALCITRIOL. [Concomitant]
     Active Substance: CALCITRIOL
     Indication: THYROIDECTOMY
  14. IMITREX [Concomitant]
     Active Substance: SUMATRIPTAN SUCCINATE
     Indication: MIGRAINE
     Dosage: 100 MG/5ML, PRN
     Route: 065
  15. DIAZEPAM. [Concomitant]
     Active Substance: DIAZEPAM
     Indication: POST-TRAUMATIC STRESS DISORDER
  16. CALCITRIOL. [Concomitant]
     Active Substance: CALCITRIOL
     Indication: PRODUCT USED FOR UNKNOWN INDICATION
     Dosage: 0.25 MCG, DAILY
     Route: 065
     Dates: start: 2008
  17. METOPROLOL TARTRATE. [Concomitant]
     Active Substance: METOPROLOL TARTRATE
     Indication: SUPRAVENTRICULAR TACHYCARDIA
     Dosage: 25 MG, BID
     Route: 048
     Dates: start: 1991
  18. CENTRUM                            /00554501/ [Concomitant]
     Active Substance: VITAMINS
     Indication: PRODUCT USED FOR UNKNOWN INDICATION
     Dosage: UNK
     Route: 065

REACTIONS (18)
  - Rotator cuff syndrome [Unknown]
  - Neuropathy peripheral [Not Recovered/Not Resolved]
  - Drug ineffective [Unknown]
  - Burning sensation [Not Recovered/Not Resolved]
  - Infection [Unknown]
  - Constipation [Not Recovered/Not Resolved]
  - Neck surgery [Unknown]
  - Intrathecal pump insertion [Recovered/Resolved]
  - Intervertebral disc protrusion [Unknown]
  - Weight decreased [Unknown]
  - Neoplasm malignant [Unknown]
  - Hospitalisation [Unknown]
  - Depression [Unknown]
  - Unevaluable event [Not Recovered/Not Resolved]
  - Road traffic accident [Unknown]
  - Meningioma [Unknown]
  - Nerve injury [Unknown]
  - Spinal operation [Unknown]

NARRATIVE: CASE EVENT DATE: 2004
